FAERS Safety Report 7777042-1 (Version None)
Quarter: 2011Q3

REPORT INFORMATION
  Report Type: 
  Country: None (occurrence: None)
  Receive Date: 20110926
  Receipt Date: 20110926
  Transmission Date: 20111222
  Serious: Yes (Life-Threatening, Other)
  Sender: FDA-Public Use
  Company Number: None

PATIENT
  Age: 33 Year
  Sex: Male
  Weight: 79.378 kg

DRUGS (2)
  1. CYMBALTA [Suspect]
     Indication: FIBROMYALGIA
     Dosage: 1 CAP
     Route: 048
     Dates: start: 20080501, end: 20110923
  2. CYMBALTA [Concomitant]

REACTIONS (6)
  - WITHDRAWAL SYNDROME [None]
  - DIZZINESS [None]
  - NAUSEA [None]
  - PARAESTHESIA [None]
  - MOOD SWINGS [None]
  - SEXUAL DYSFUNCTION [None]
